FAERS Safety Report 17794549 (Version 1)
Quarter: 2020Q2

REPORT INFORMATION
  Report Type: Spontaneous
  Country: DE (occurrence: DE)
  Receive Date: 20200516
  Receipt Date: 20200516
  Transmission Date: 20200714
  Serious: Yes (Hospitalization)
  Sender: FDA-Public Use
  Company Number: DE-TEVA-2020-DE-1234767

PATIENT
  Age: 79 Year
  Sex: Female

DRUGS (4)
  1. LOSARTAN. [Concomitant]
     Active Substance: LOSARTAN
     Dosage: 25 MILLIGRAM DAILY;  1-0-0-0
  2. LACTULOSE. [Concomitant]
     Active Substance: LACTULOSE
     Dosage: NK MG, IF NECESSARY
  3. METAMIZOL [Concomitant]
     Active Substance: METAMIZOLE SODIUM
     Dosage: 500 MG, IF NECESSARY
  4. TORASEMID [Suspect]
     Active Substance: TORSEMIDE
     Dosage: 10 MILLIGRAM DAILY;  1-0-0-0

REACTIONS (4)
  - Dysuria [Unknown]
  - Food refusal [Unknown]
  - General physical health deterioration [Unknown]
  - Fluid intake reduced [Unknown]
